FAERS Safety Report 6728243-2 (Version None)
Quarter: 2010Q2

REPORT INFORMATION
  Report Type: 
  Country: None (occurrence: None)
  Receive Date: 20100517
  Receipt Date: 20100512
  Transmission Date: 20101027
  Serious: Yes (Other)
  Sender: FDA-Public Use
  Company Number: DE-BRISTOL-MYERS SQUIBB COMPANY-15105299

PATIENT
  Age: 68 Year
  Sex: Male

DRUGS (2)
  1. ABILIFY [Suspect]
     Route: 048
  2. JATROSOM N [Suspect]
     Route: 048

REACTIONS (2)
  - SEROTONIN SYNDROME [None]
  - SUICIDE ATTEMPT [None]
